FAERS Safety Report 9749476 (Version 5)
Quarter: 2014Q1

REPORT INFORMATION
  Report Type: Spontaneous
  Country: US (occurrence: US)
  Receive Date: 20131212
  Receipt Date: 20140117
  Transmission Date: 20141002
  Serious: No
  Sender: FDA-Public Use
  Company Number: US-GILEAD-2013-0089563

PATIENT
  Sex: Female

DRUGS (1)
  1. LETAIRIS [Suspect]
     Indication: PULMONARY ARTERIAL HYPERTENSION
     Dosage: 10 MG, QD
     Route: 065
     Dates: start: 20131014, end: 20131231

REACTIONS (5)
  - Hypoaesthesia [Unknown]
  - Skin exfoliation [Unknown]
  - Productive cough [Unknown]
  - Adverse reaction [Unknown]
  - Oedema peripheral [Unknown]
